FAERS Safety Report 15345349 (Version 1)
Quarter: 2018Q3

REPORT INFORMATION
  Report Type: Spontaneous
  Country: US (occurrence: US)
  Receive Date: 20180903
  Receipt Date: 20180903
  Transmission Date: 20181010
  Serious: Yes (Other)
  Sender: FDA-Public Use
  Company Number: US-CELGENEUS-USA-20180808179

PATIENT
  Sex: Female

DRUGS (1)
  1. ABRAXANE [Suspect]
     Active Substance: PACLITAXEL
     Indication: BREAST CANCER STAGE IV
     Route: 065

REACTIONS (5)
  - Eye swelling [Unknown]
  - Arthropod sting [Unknown]
  - Swelling face [Unknown]
  - Erythema [Unknown]
  - Ocular hyperaemia [Unknown]
